FAERS Safety Report 4560198-1 (Version None)
Quarter: 2005Q1

REPORT INFORMATION
  Report Type: 
  Country: None (occurrence: None)
  Receive Date: 20050125
  Receipt Date: 20041207
  Transmission Date: 20050727
  Serious: Yes (Hospitalization)
  Sender: FDA-Public Use
  Company Number: PHRM2004FR03629

PATIENT
  Age: 38 Year
  Sex: Female
  Weight: 96 kg

DRUGS (6)
  1. DITROPAN [Concomitant]
     Route: 048
  2. SEROPRAM [Concomitant]
  3. DUPHALAC [Concomitant]
     Route: 048
  4. LANSOYL [Concomitant]
     Route: 048
  5. XANAX [Concomitant]
     Route: 048
  6. LEPONEX [Suspect]
     Indication: SCHIZOPHRENIA
     Dosage: 350 MG/DAY
     Route: 048
     Dates: start: 20031215

REACTIONS (9)
  - ANTIPSYCHOTIC DRUG LEVEL ABOVE THERAPEUTIC [None]
  - ANXIETY [None]
  - BLOOD ALKALINE PHOSPHATASE INCREASED [None]
  - DELIRIUM [None]
  - ELECTROCARDIOGRAM QT PROLONGED [None]
  - GAMMA-GLUTAMYLTRANSFERASE INCREASED [None]
  - HALLUCINATION [None]
  - PSYCHOTIC DISORDER [None]
  - THERAPEUTIC RESPONSE DECREASED [None]
